FAERS Safety Report 12037847 (Version 1)
Quarter: 2016Q1

REPORT INFORMATION
  Report Type: Spontaneous
  Country: US (occurrence: None)
  Receive Date: 20160205
  Receipt Date: 20160205
  Transmission Date: 20160526
  Serious: Yes (Disabling)
  Sender: FDA-Public Use
  Company Number: None

PATIENT
  Age: 60 Year
  Sex: Male
  Weight: 79.38 kg

DRUGS (15)
  1. DISULFIRAM. [Suspect]
     Active Substance: DISULFIRAM
     Indication: ALCOHOLISM
     Route: 048
     Dates: start: 20151212, end: 20160124
  2. SERTRALINE [Concomitant]
     Active Substance: SERTRALINE HYDROCHLORIDE
  3. PANTOPRAZOLE [Concomitant]
     Active Substance: PANTOPRAZOLE SODIUM
  4. FOLIC ACID. [Concomitant]
     Active Substance: FOLIC ACID
  5. ASTORVASTIN [Concomitant]
  6. POTASSIUM GLUCONATE [Concomitant]
     Active Substance: POTASSIUM GLUCONATE
  7. METFORMIN [Concomitant]
     Active Substance: METFORMIN HYDROCHLORIDE
  8. NOVALIN [Concomitant]
  9. METOPROLOL TARTRAT [Concomitant]
  10. CENTRUM SILVER [Concomitant]
     Active Substance: MINERALS\VITAMINS
  11. VITAMIN B12 [Concomitant]
     Active Substance: CYANOCOBALAMIN
  12. AMITRIPYLINE [Concomitant]
  13. GABAPENTIN. [Concomitant]
     Active Substance: GABAPENTIN
  14. MAGNESIUM OXIDE. [Concomitant]
     Active Substance: MAGNESIUM OXIDE
  15. ASPRIN [Concomitant]
     Active Substance: ASPIRIN

REACTIONS (11)
  - Communication disorder [None]
  - Coordination abnormal [None]
  - Seizure [None]
  - Injury [None]
  - Tremor [None]
  - Confusional state [None]
  - Fall [None]
  - Impaired work ability [None]
  - Activities of daily living impaired [None]
  - Amnesia [None]
  - Impaired self-care [None]

NARRATIVE: CASE EVENT DATE: 20151215
